FAERS Safety Report 18392902 (Version 1)
Quarter: 2020Q4

REPORT INFORMATION
  Report Type: Spontaneous
  Country: US (occurrence: US)
  Receive Date: 20201016
  Receipt Date: 20201016
  Transmission Date: 20210114
  Serious: Yes (Hospitalization)
  Sender: FDA-Public Use
  Company Number: None

PATIENT
  Age: 13 Year
  Sex: Female

DRUGS (14)
  1. ALBUTEROL. [Concomitant]
     Active Substance: ALBUTEROL
  2. SILACE [Concomitant]
     Active Substance: DOCUSATE SODIUM
  3. TOBRAMYCIN 300MG/5ML GEQ TOBI [Suspect]
     Active Substance: TOBRAMYCIN
     Indication: EPILEPSY
     Route: 045
     Dates: start: 20190718
  4. BISACODYL. [Concomitant]
     Active Substance: BISACODYL
  5. BUDESONIDE. [Concomitant]
     Active Substance: BUDESONIDE
  6. CLOBAZAM. [Concomitant]
     Active Substance: CLOBAZAM
  7. FLINTSTONES CHW [Concomitant]
  8. DIAZEPAM. [Concomitant]
     Active Substance: DIAZEPAM
  9. LACTULOSE. [Concomitant]
     Active Substance: LACTULOSE
  10. OLOPADTADINE [Concomitant]
  11. CALCIUM [Concomitant]
     Active Substance: CALCIUM
  12. FAMOTIDINE. [Concomitant]
     Active Substance: FAMOTIDINE
  13. HYDROCHLOROT [Concomitant]
     Active Substance: HYDROCHLOROTHIAZIDE
  14. LEVOTHYROXIN [Concomitant]
     Active Substance: LEVOTHYROXINE

REACTIONS (1)
  - Pneumonia [None]

NARRATIVE: CASE EVENT DATE: 20200928
